FAERS Safety Report 5605332-7 (Version None)
Quarter: 2008Q1

REPORT INFORMATION
  Report Type: 
  Country: None (occurrence: None)
  Receive Date: 20080123
  Receipt Date: 20080107
  Transmission Date: 20080703
  Serious: Yes (Death, Hospitalization)
  Sender: FDA-Public Use
  Company Number: IMP_03378_2008

PATIENT
  Age: 51 Year
  Sex: Female

DRUGS (2)
  1. ALPRAZOLAM [Suspect]
     Indication: DRUG USE FOR UNKNOWN INDICATION
     Dosage: (DF ORAL)
     Route: 048
  2. VERAPAMIL [Suspect]
     Indication: DRUG USE FOR UNKNOWN INDICATION
     Dosage: (120 MG APPROXIMATELY THREE BOTTLES OF 120 MG SUSTAINED RELEASE TABLETS ONE TIME ORAL)
     Route: 048

REACTIONS (9)
  - BLOOD CREATININE INCREASED [None]
  - BLOOD GLUCOSE INCREASED [None]
  - BRADYCARDIA [None]
  - CARDIAC ARREST [None]
  - COMPLETED SUICIDE [None]
  - GASTROINTESTINAL SOUNDS ABNORMAL [None]
  - LOSS OF CONSCIOUSNESS [None]
  - NODAL RHYTHM [None]
  - POISONING [None]
